FAERS Safety Report 11155602 (Version 2)
Quarter: 2016Q1

REPORT INFORMATION
  Report Type: Spontaneous
  Country: IL (occurrence: IL)
  Receive Date: 20150602
  Receipt Date: 20160106
  Transmission Date: 20160525
  Serious: Yes (Other)
  Sender: FDA-Public Use
  Company Number: IL-BAYER-2015-289428

PATIENT
  Age: 51 Year
  Sex: Female

DRUGS (1)
  1. MIRENA [Suspect]
     Active Substance: LEVONORGESTREL
     Indication: MENORRHAGIA
     Dosage: DAILY DOSE 20 ?G/D
     Route: 015
     Dates: start: 2010

REACTIONS (2)
  - Uterine leiomyoma [None]
  - Leiomyosarcoma [None]

NARRATIVE: CASE EVENT DATE: 2015
